FAERS Safety Report 5470443-6 (Version None)
Quarter: 2007Q3

REPORT INFORMATION
  Report Type: 
  Country: None (occurrence: None)
  Receive Date: 20070820
  Receipt Date: 20070509
  Transmission Date: 20080115
  Serious: No
  Sender: FDA-Public Use
  Company Number: WAES 0705USA02083

PATIENT
  Age: 76 Year
  Sex: Male
  Weight: 141.5223 kg

DRUGS (5)
  1. JANUVIA [Suspect]
     Indication: TYPE 2 DIABETES MELLITUS
     Dosage: 100 MG/DAILY/PO
     Route: 048
  2. ACTOS [Concomitant]
  3. LIPITOR [Concomitant]
  4. TRICOR [Concomitant]
  5. GLYBURIDE [Concomitant]

REACTIONS (3)
  - OEDEMA PERIPHERAL [None]
  - RASH [None]
  - SWELLING FACE [None]
